FAERS Safety Report 25649508 (Version 1)
Quarter: 2025Q3

REPORT INFORMATION
  Report Type: Spontaneous
  Country: US (occurrence: US)
  Receive Date: 20250806
  Receipt Date: 20250806
  Transmission Date: 20251021
  Serious: No
  Sender: CSL BEHRING
  Company Number: US-BEH-2025214544

PATIENT
  Sex: Male

DRUGS (1)
  1. ANDEMBRY [Suspect]
     Active Substance: GARADACIMAB-GXII
     Route: 065

REACTIONS (3)
  - Respiratory disorder [Unknown]
  - Rash [Unknown]
  - Product prescribing issue [Unknown]
